FAERS Safety Report 25758042 (Version 5)
Quarter: 2025Q4

REPORT INFORMATION
  Report Type: Report from Study
  Country: EU (occurrence: EU)
  Receive Date: 20250903
  Receipt Date: 20251219
  Transmission Date: 20260117
  Serious: Yes (Other)
  Sender: ABBVIE
  Company Number: EU-ABBVIE-6440215

PATIENT
  Age: 81 Year
  Sex: Male
  Weight: 77 kg

DRUGS (12)
  1. CARBIDOPA\LEVODOPA [Suspect]
     Active Substance: CARBIDOPA\LEVODOPA
     Indication: Parkinson^s disease
     Route: 050
     Dates: start: 20240129
  2. CARBIDOPA\LEVODOPA [Suspect]
     Active Substance: CARBIDOPA\LEVODOPA
  3. PANTOPRAZOLE [Concomitant]
     Active Substance: PANTOPRAZOLE
     Indication: Product used for unknown indication
     Dosage: PANTOPRAZOLE TABLET 40MG
  4. CETIRIZINE DIHCL ACTAVIS [Concomitant]
     Indication: Product used for unknown indication
     Dosage: CETIRIZINE DIHCL ACTAVIS 10 MG
  5. VITAMINS [Concomitant]
     Active Substance: VITAMINS
     Indication: Product used for unknown indication
     Dosage: SELF-CARE
  6. PRAMIPEXOLE [Concomitant]
     Active Substance: PRAMIPEXOLE
     Indication: Parkinson^s disease
     Dosage: PRAMIPEXOLE TABLET RET 0.375MG
  7. APIXABAN [Concomitant]
     Active Substance: APIXABAN
     Indication: Product used for unknown indication
     Dosage: APIXABAN TABLET 5MG
  8. SIMVASTATIN [Concomitant]
     Active Substance: SIMVASTATIN
     Indication: Product used for unknown indication
     Dosage: SIMVASTATIN ACCORD 20 MG
  9. METFORMIN [Concomitant]
     Active Substance: METFORMIN HYDROCHLORIDE
     Indication: Product used for unknown indication
     Dosage: METFORMIN TABLET 500 MG
  10. PERINDOPRIL [Concomitant]
     Active Substance: PERINDOPRIL
     Indication: Product used for unknown indication
     Dosage: PERINDOPRIL TABLET 2MG
  11. BENSERAZIDE HYDROCHLORIDE\LEVODOPA [Concomitant]
     Active Substance: BENSERAZIDE HYDROCHLORIDE\LEVODOPA
     Indication: Parkinson^s disease
     Dosage: MADOPAR DISPER TABLET 125MG
  12. DYSPORT [Concomitant]
     Active Substance: ABOBOTULINUMTOXINA
     Indication: Product used for unknown indication
     Dosage: DYSPORT INJECTION POWDER BOTTLE 300E DOSAGE

REACTIONS (15)
  - Cataract [Unknown]
  - Parkinson^s disease [Not Recovered/Not Resolved]
  - Myalgia [Not Recovered/Not Resolved]
  - Mobility decreased [Not Recovered/Not Resolved]
  - Fall [Not Recovered/Not Resolved]
  - Hyperkinesia [Not Recovered/Not Resolved]
  - Weight decreased [Unknown]
  - Bowel movement irregularity [Unknown]
  - Reduced facial expression [Not Recovered/Not Resolved]
  - Abnormal dreams [Unknown]
  - Stoma site erythema [Unknown]
  - Stoma site discharge [Unknown]
  - Hypertension [Unknown]
  - Fluid intake reduced [Not Recovered/Not Resolved]
  - Fear [Not Recovered/Not Resolved]
